FAERS Safety Report 8027617-X (Version None)
Quarter: 2012Q1

REPORT INFORMATION
  Report Type: 
  Country: None (occurrence: None)
  Receive Date: 20120106
  Receipt Date: 20111229
  Transmission Date: 20120608
  Serious: Yes (Other)
  Sender: FDA-Public Use
  Company Number: US-EISAI INC-E3810-05219-SPO-US

PATIENT
  Sex: Female

DRUGS (1)
  1. ACIPHEX [Suspect]
     Indication: CHOKING SENSATION
     Route: 048
     Dates: start: 20060101

REACTIONS (6)
  - MENOPAUSE [None]
  - HYPERTENSION [None]
  - HYPOTHYROIDISM [None]
  - ARTHRALGIA [None]
  - CHOKING SENSATION [None]
  - BACK PAIN [None]
